FAERS Safety Report 7936797-3 (Version None)
Quarter: 2011Q4

REPORT INFORMATION
  Report Type: 
  Country: None (occurrence: None)
  Receive Date: 20111123
  Receipt Date: 20111120
  Transmission Date: 20120403
  Serious: No
  Sender: FDA-Public Use
  Company Number: US-TEVA-310166USA

PATIENT
  Sex: Female
  Weight: 52.21 kg

DRUGS (5)
  1. CETIRIZINE HCL [Concomitant]
     Indication: ASTHMA
     Dosage: 10 MILLIGRAM;
  2. PLAN B ONE-STEP [Suspect]
     Indication: POST COITAL CONTRACEPTION
     Dosage: 1.5 MILLIGRAM;
     Route: 048
     Dates: start: 20111114, end: 20111114
  3. CETIRIZINE HCL [Concomitant]
     Indication: HYPERSENSITIVITY
  4. ADVAIR DISKUS 100/50 [Concomitant]
     Indication: ASTHMA
     Dosage: 500 MICROGRAM;
  5. SINGULAIR [Concomitant]
     Indication: ASTHMA

REACTIONS (1)
  - MENSTRUATION IRREGULAR [None]
